FAERS Safety Report 5717716-7 (Version None)
Quarter: 2008Q2

REPORT INFORMATION
  Report Type: 
  Country: None (occurrence: None)
  Receive Date: 20080425
  Receipt Date: 20080412
  Transmission Date: 20081010
  Serious: Yes (Hospitalization, Other)
  Sender: FDA-Public Use
  Company Number: US-AMGEN-QUU274383

PATIENT
  Sex: Female

DRUGS (2)
  1. ENBREL [Suspect]
     Indication: ANKYLOSING SPONDYLITIS
     Route: 058
  2. ARAVA [Concomitant]
     Route: 048

REACTIONS (5)
  - CATARACT [None]
  - CORNEAL DISORDER [None]
  - DEVICE BREAKAGE [None]
  - INJECTION SITE BRUISING [None]
  - TENDON DISORDER [None]
